FAERS Safety Report 17179402 (Version 1)
Quarter: 2019Q4

REPORT INFORMATION
  Report Type: Spontaneous
  Country: US (occurrence: US)
  Receive Date: 20191219
  Receipt Date: 20191219
  Transmission Date: 20200122
  Serious: Yes (Death, Hospitalization, Other)
  Sender: FDA-Public Use
  Company Number: US-BAXTER-2019BAX025428

PATIENT
  Age: 86 Year
  Sex: Male
  Weight: 89 kg

DRUGS (7)
  1. HEPARIN [Suspect]
     Active Substance: HEPARIN SODIUM
     Indication: RENAL REPLACEMENT THERAPY
     Dosage: DROPS
     Route: 010
     Dates: start: 201911
  2. BICARBONATE [Suspect]
     Active Substance: SODIUM BICARBONATE
     Indication: RENAL REPLACEMENT THERAPY
     Dosage: DROPS
     Route: 010
     Dates: start: 201911
  3. OXYGEN. [Concomitant]
     Active Substance: OXYGEN
     Indication: PRODUCT USED FOR UNKNOWN INDICATION
     Route: 055
  4. EPINEPHRINE. [Suspect]
     Active Substance: EPINEPHRINE
     Dosage: AT 20 MCG PER MINUTE
     Route: 065
     Dates: start: 201911
  5. EPINEPHRINE. [Suspect]
     Active Substance: EPINEPHRINE
     Dosage: AT 10 MCG PER MINUTE
     Route: 065
     Dates: start: 201911
  6. EPINEPHRINE. [Suspect]
     Active Substance: EPINEPHRINE
     Indication: PRODUCT USED FOR UNKNOWN INDICATION
     Dosage: AT 2 MCG PER MINUTE
     Route: 065
     Dates: start: 201911
  7. LACTATED RINGERS SOLUTION [Suspect]
     Active Substance: CALCIUM CHLORIDE\POTASSIUM CHLORIDE\SODIUM CHLORIDE\SODIUM LACTATE
     Indication: PRODUCT USED FOR UNKNOWN INDICATION
     Dosage: WAS GIVEN WITH PRESSURE BAG
     Route: 065
     Dates: start: 201911

REACTIONS (6)
  - Heart rate decreased [Unknown]
  - Death [Fatal]
  - Device malfunction [Unknown]
  - Mean arterial pressure decreased [Unknown]
  - Haemorrhage [Unknown]
  - Blood pressure decreased [Unknown]

NARRATIVE: CASE EVENT DATE: 201911
